FAERS Safety Report 9839928 (Version 1)
Quarter: 2014Q1

REPORT INFORMATION
  Report Type: Spontaneous
  Country: FR (occurrence: FR)
  Receive Date: 20140124
  Receipt Date: 20140124
  Transmission Date: 20141002
  Serious: Yes (Hospitalization)
  Sender: FDA-Public Use
  Company Number: FR-009507513-1401FRA006684

PATIENT
  Age: 23 Year
  Sex: Female

DRUGS (5)
  1. ORGALUTRAN [Suspect]
     Indication: IN VITRO FERTILISATION
     Dosage: 1 DF, QD
     Route: 058
     Dates: start: 20130614, end: 20130619
  2. ORGALUTRAN [Suspect]
     Dosage: UNK
  3. GONAL-F [Suspect]
     Indication: IN VITRO FERTILISATION
     Dosage: 125 IU, QID
     Route: 058
     Dates: start: 20130610
  4. GONAL-F [Suspect]
     Dosage: 150 IU, QID
     Route: 058
  5. GONAL-F [Suspect]
     Dosage: 100 IU, QD
     Dates: end: 20130619

REACTIONS (2)
  - Ovarian hyperstimulation syndrome [Recovered/Resolved]
  - Haematocrit increased [Recovered/Resolved]
